FAERS Safety Report 18118694 (Version 2)
Quarter: 2021Q2

REPORT INFORMATION
  Report Type: Spontaneous
  Country: US (occurrence: US)
  Receive Date: 20200806
  Receipt Date: 20210406
  Transmission Date: 20210717
  Serious: Yes (Other)
  Sender: FDA-Public Use
  Company Number: US-GILEAD-2020-0487450

PATIENT
  Age: 43 Year
  Sex: Male

DRUGS (3)
  1. DESCOVY [Concomitant]
     Active Substance: EMTRICITABINE\TENOFOVIR ALAFENAMIDE FUMARATE
  2. VITAMIN D2 [Concomitant]
     Active Substance: ERGOCALCIFEROL
  3. TRUVADA [Suspect]
     Active Substance: EMTRICITABINE\TENOFOVIR DISOPROXIL FUMARATE
     Indication: HIV INFECTION
     Dosage: UNK
     Route: 048
     Dates: start: 201712, end: 201904

REACTIONS (9)
  - Osteoporosis [Not Recovered/Not Resolved]
  - Blood creatinine increased [Unknown]
  - Acute kidney injury [Not Recovered/Not Resolved]
  - Bone density decreased [Unknown]
  - Multiple fractures [Unknown]
  - Tooth extraction [Recovered/Resolved]
  - Spinal fracture [Recovered/Resolved]
  - Tooth loss [Unknown]
  - Bone loss [Recovered/Resolved]

NARRATIVE: CASE EVENT DATE: 20181105
